FAERS Safety Report 20664283 (Version 1)
Quarter: 2022Q2

REPORT INFORMATION
  Report Type: Report from Study
  Country: US (occurrence: US)
  Receive Date: 20220401
  Receipt Date: 20220401
  Transmission Date: 20220721
  Serious: Yes (Other)
  Sender: FDA-Public Use
  Company Number: US-GILEAD-2022-0575936

PATIENT
  Age: 91 Year
  Sex: Female

DRUGS (1)
  1. IDELALISIB [Suspect]
     Active Substance: IDELALISIB
     Indication: Lymphocytic leukaemia
     Dosage: 100 MG, BID
     Route: 048
     Dates: start: 20211115, end: 20220331

REACTIONS (2)
  - Hip fracture [Unknown]
  - Therapy cessation [Not Recovered/Not Resolved]

NARRATIVE: CASE EVENT DATE: 20220331
